FAERS Safety Report 8154682 (Version 6)
Quarter: 2012Q4

REPORT INFORMATION
  Report Type: 
  Country: CA (occurrence: CA)
  Receive Date: 20110923
  Receipt Date: 20121011
  Transmission Date: 20130627
  Serious: Yes (Other)
  Sender: FDA-Public Use
  Company Number: CA-GLAXOSMITHKLINE-A0933345A

PATIENT
  Age: 66 None
  Sex: Female
  Weight: 75 kg

DRUGS (4)
  1. ADVAIR [Suspect]
     Indication: CHRONIC OBSTRUCTIVE PULMONARY DISEASE
     Dosage: 1PUFF Twice per day
     Route: 055
     Dates: start: 2008
  2. SPIRIVA [Suspect]
     Indication: CHRONIC OBSTRUCTIVE PULMONARY DISEASE
     Route: 065
  3. VENTOLIN [Suspect]
     Dosage: 4PUFF Four times per day
     Route: 065
  4. MORPHINE [Concomitant]

REACTIONS (17)
  - Candidiasis [Not Recovered/Not Resolved]
  - Myocardial infarction [Recovering/Resolving]
  - Cough [Unknown]
  - Chest pain [Unknown]
  - Dyspnoea [Not Recovered/Not Resolved]
  - Condition aggravated [Not Recovered/Not Resolved]
  - Arthritis [Not Recovered/Not Resolved]
  - Bone disorder [Unknown]
  - Denture wearer [Unknown]
  - Tooth extraction [Unknown]
  - Gait disturbance [Unknown]
  - Mobility decreased [Unknown]
  - Pulmonary mass [Not Recovered/Not Resolved]
  - Decreased appetite [Not Recovered/Not Resolved]
  - Fear of eating [Not Recovered/Not Resolved]
  - Choking [Not Recovered/Not Resolved]
  - Overdose [Unknown]
